FAERS Safety Report 5379691-7 (Version None)
Quarter: 2007Q3

REPORT INFORMATION
  Report Type: 
  Country: None (occurrence: None)
  Receive Date: 20070706
  Receipt Date: 20070629
  Transmission Date: 20080115
  Serious: Yes (Death, Other)
  Sender: FDA-Public Use
  Company Number: PHBS2007JP10463

PATIENT
  Age: 46 Year
  Sex: Male

DRUGS (5)
  1. ETOPOSIDE [Concomitant]
     Indication: STEM CELL TRANSPLANT
  2. METHOTREXATE [Concomitant]
     Indication: STEM CELL TRANSPLANT
     Route: 065
  3. BUSULFAN [Concomitant]
     Indication: STEM CELL TRANSPLANT
     Route: 065
  4. CYCLOPHOSPHAMIDE [Concomitant]
     Indication: STEM CELL TRANSPLANT
     Route: 065
  5. CYCLOSPORINE [Suspect]
     Indication: STEM CELL TRANSPLANT
     Route: 065

REACTIONS (4)
  - DUODENAL ULCER [None]
  - DUODENAL ULCER HAEMORRHAGE [None]
  - INFECTION [None]
  - PLEURAL EFFUSION [None]
